FAERS Safety Report 16790502 (Version 1)
Quarter: 2019Q3

REPORT INFORMATION
  Report Type: Spontaneous
  Country: US (occurrence: US)
  Receive Date: 20190910
  Receipt Date: 20190910
  Transmission Date: 20191005
  Serious: No
  Sender: FDA-Public Use
  Company Number: US-PFIZER INC-2019388899

PATIENT
  Age: 74 Year
  Sex: Male
  Weight: 102.8 kg

DRUGS (1)
  1. INSPRA [Suspect]
     Active Substance: EPLERENONE
     Dosage: 50 MG, DAILY (TAKE 1 TABLET (50 MG TOTAL) BY MOUTH DAILY)
     Route: 048

REACTIONS (2)
  - Insomnia [Unknown]
  - Depressed mood [Unknown]
